FAERS Safety Report 6919207-4 (Version None)
Quarter: 2010Q3

REPORT INFORMATION
  Report Type: 
  Country: None (occurrence: None)
  Receive Date: 20100811
  Receipt Date: 20100809
  Transmission Date: 20110219
  Serious: Yes (Hospitalization, Disabling)
  Sender: FDA-Public Use
  Company Number: B0650914A

PATIENT
  Age: 70 Year
  Sex: Male

DRUGS (8)
  1. CLOPIDOGREL [Suspect]
     Dosage: 75MG PER DAY
  2. ACETYLSALICYLIC ACID SRT [Suspect]
     Dosage: 75MG PER DAY
  3. ERYTHROMYCIN [Suspect]
     Indication: CELLULITIS
     Dosage: 1000MG PER DAY
     Route: 048
  4. METRONIDAZOLE [Suspect]
     Dosage: 1200MG PER DAY
     Route: 048
  5. CIPROFLOXACIN [Suspect]
     Dosage: 1500MG PER DAY
  6. WARFARIN [Suspect]
     Indication: PULMONARY EMBOLISM
  7. MEROPENEM [Suspect]
     Dosage: 4G PER DAY
  8. TEICOPLANIN [Suspect]
     Dosage: 400MG PER DAY
     Route: 030

REACTIONS (9)
  - DECREASED APPETITE [None]
  - DRUG INTERACTION [None]
  - EYE PAIN [None]
  - HEADACHE [None]
  - HYPHAEMA [None]
  - INTERNATIONAL NORMALISED RATIO INCREASED [None]
  - INTRAOCULAR PRESSURE INCREASED [None]
  - NAUSEA [None]
  - PYREXIA [None]
